FAERS Safety Report 5251632-2 (Version None)
Quarter: 2007Q1

REPORT INFORMATION
  Report Type: 
  Country: None (occurrence: None)
  Receive Date: 20070228
  Receipt Date: 20060928
  Transmission Date: 20070707
  Serious: No
  Sender: FDA-Public Use
  Company Number: US-GLAXOSMITHKLINE-A0621804A

PATIENT
  Sex: Female

DRUGS (8)
  1. LAMICTAL [Suspect]
     Route: 048
  2. MYLANTA [Concomitant]
  3. LORAZEPAM [Concomitant]
  4. COGENTIN [Concomitant]
  5. DEXAMETHASONE [Concomitant]
  6. PREDNISONE [Concomitant]
  7. SEROQUEL [Concomitant]
  8. ZYPREXA [Concomitant]

REACTIONS (1)
  - ALOPECIA [None]
